FAERS Safety Report 16814974 (Version 1)
Quarter: 2019Q3

REPORT INFORMATION
  Report Type: Report from Study
  Country: IN (occurrence: IN)
  Receive Date: 20190917
  Receipt Date: 20190917
  Transmission Date: 20191005
  Serious: Yes (Other)
  Sender: FDA-Public Use
  Company Number: PHHY2019IN214820

PATIENT
  Sex: Male

DRUGS (1)
  1. GLIVEC [Suspect]
     Active Substance: IMATINIB MESYLATE
     Indication: CHRONIC MYELOID LEUKAEMIA
     Dosage: 300 MG, UNK
     Route: 065

REACTIONS (6)
  - Bone disorder [Unknown]
  - Kidney infection [Unknown]
  - Thrombocytopenia [Unknown]
  - Gangrene [Unknown]
  - Anaemia [Unknown]
  - Renal impairment [Unknown]
